FAERS Safety Report 7931518-2 (Version None)
Quarter: 2011Q4

REPORT INFORMATION
  Report Type: 
  Country: None (occurrence: None)
  Receive Date: 20111121
  Receipt Date: 20111121
  Transmission Date: 20120403
  Serious: Yes (Other)
  Sender: FDA-Public Use
  Company Number: None

PATIENT
  Sex: Male
  Weight: 106.59 kg

DRUGS (1)
  1. PRADAXA [Suspect]
     Indication: COAGULOPATHY
     Dosage: 150MG
     Route: 048
     Dates: start: 20110107, end: 20111119

REACTIONS (2)
  - DYSPNOEA [None]
  - TOTAL LUNG CAPACITY DECREASED [None]
